FAERS Safety Report 10221602 (Version 2)
Quarter: 2014Q2

REPORT INFORMATION
  Report Type: Report from Study
  Country: GR (occurrence: GR)
  Receive Date: 20140606
  Receipt Date: 20140623
  Transmission Date: 20141212
  Serious: No
  Sender: FDA-Public Use
  Company Number: GR-ASTELLAS-2014EU006781

PATIENT
  Age: 78 Year
  Sex: Female
  Weight: 65 kg

DRUGS (5)
  1. MICAFUNGIN [Suspect]
     Indication: ANTIFUNGAL PROPHYLAXIS
     Route: 042
     Dates: start: 20140318, end: 20140323
  2. MERONEM [Concomitant]
     Indication: ANTIBIOTIC THERAPY
     Route: 042
     Dates: start: 20140318
  3. ZYVOXID [Concomitant]
     Indication: ANTIBIOTIC THERAPY
     Route: 042
     Dates: start: 20140318, end: 20140323
  4. LORDIN                             /00661202/ [Concomitant]
     Indication: INHIBITORY DRUG INTERACTION
     Route: 042
     Dates: start: 20140318
  5. AVELOX                             /01278901/ [Concomitant]
     Indication: ANTIBIOTIC THERAPY
     Route: 042
     Dates: start: 20140318

REACTIONS (2)
  - Off label use [Unknown]
  - Intentional product misuse [Unknown]
